FAERS Safety Report 13617384 (Version 1)
Quarter: 2017Q2

REPORT INFORMATION
  Report Type: Spontaneous
  Country: US (occurrence: US)
  Receive Date: 20170606
  Receipt Date: 20170606
  Transmission Date: 20170830
  Serious: No
  Sender: FDA-Public Use
  Company Number: US-SA-2017SA028717

PATIENT
  Age: 63 Year
  Sex: Male

DRUGS (5)
  1. LANTUS SOLOSTAR [Suspect]
     Active Substance: INSULIN GLARGINE
     Indication: TYPE 1 DIABETES MELLITUS
     Dosage: DOSE:30 UNIT(S)
     Route: 065
     Dates: start: 201612
  2. VICTOZA [Concomitant]
     Active Substance: LIRAGLUTIDE
  3. NOVOLOG [Concomitant]
     Active Substance: INSULIN ASPART
  4. SOLOSTAR [Suspect]
     Active Substance: DEVICE
     Indication: TYPE 1 DIABETES MELLITUS
     Dates: start: 201612
  5. VICTOZA [Concomitant]
     Active Substance: LIRAGLUTIDE
     Dosage: DOSE DOUBLED

REACTIONS (8)
  - Hyperhidrosis [Unknown]
  - Asthenia [Unknown]
  - Blood glucose decreased [Unknown]
  - Tremor [Unknown]
  - Anxiety [Unknown]
  - Dizziness [Unknown]
  - Pain [Unknown]
  - Device issue [Unknown]
